FAERS Safety Report 7887721-3 (Version None)
Quarter: 2011Q4

REPORT INFORMATION
  Report Type: 
  Country: None (occurrence: None)
  Receive Date: 20111103
  Receipt Date: 20111101
  Transmission Date: 20120403
  Serious: Yes (Death, Hospitalization, Other)
  Sender: FDA-Public Use
  Company Number: US-BRISTOL-MYERS SQUIBB COMPANY-14216303

PATIENT
  Age: 88 Year
  Sex: Male

DRUGS (14)
  1. UROXATRAL [Concomitant]
  2. METHIONINE [Concomitant]
     Dates: start: 20080524
  3. METOPROLOL TARTRATE [Concomitant]
     Dates: start: 20080524
  4. LEXAPRO [Concomitant]
     Dates: start: 20080525
  5. POTASSIUM CHLORIDE [Concomitant]
     Dates: start: 20080527
  6. IPILIMUMAB [Suspect]
     Indication: MALIGNANT MELANOMA
     Route: 042
     Dates: start: 20071130, end: 20080519
  7. PREDNISONE [Concomitant]
     Dosage: ALSO 40MG
     Route: 048
     Dates: end: 20080521
  8. AVODART [Concomitant]
     Route: 048
  9. LEVOTHYROXINE SODIUM [Concomitant]
     Dosage: 1 TABLET DAILY
  10. AMIODARONE HCL [Concomitant]
     Dates: start: 20080528
  11. LEVAQUIN [Concomitant]
     Dates: start: 20080524
  12. MAGNESIUM OXIDE [Concomitant]
     Dates: start: 20080527
  13. ANDROGEL [Concomitant]
     Dosage: DOSAGE FORM = INJECTION
     Dates: end: 20080521
  14. LASIX [Concomitant]
     Dates: start: 20080524

REACTIONS (4)
  - PNEUMONIA [None]
  - URINARY TRACT INFECTION [None]
  - VENTRICULAR TACHYCARDIA [None]
  - PROCTITIS [None]
